FAERS Safety Report 7279946-5 (Version None)
Quarter: 2011Q1

REPORT INFORMATION
  Report Type: 
  Country: None (occurrence: None)
  Receive Date: 20110208
  Receipt Date: 20101228
  Transmission Date: 20110831
  Serious: Yes (Hospitalization, Other)
  Sender: FDA-Public Use
  Company Number: US-BAYER-201010712NA

PATIENT
  Sex: Female
  Weight: 127 kg

DRUGS (7)
  1. XANAX [Concomitant]
     Indication: ANXIETY
  2. ADVIL [Concomitant]
     Indication: PAIN
  3. YAZ [Suspect]
     Indication: PRODUCT USED FOR UNKNOWN INDICATION
  4. UNCODEABLE ^UNCLASSIFIABLE^ [Concomitant]
  5. VIRAL VACCINES [Concomitant]
  6. ZANTAC [Concomitant]
  7. YASMIN [Suspect]
     Indication: MENSTRUAL DISORDER
     Dosage: 1 DF (DAILY DOSE), QD, ORAL
     Route: 048
     Dates: start: 20040901, end: 20070215

REACTIONS (10)
  - MUSCULOSKELETAL CHEST PAIN [None]
  - GASTROOESOPHAGEAL REFLUX DISEASE [None]
  - BILE DUCT STONE [None]
  - CHOLECYSTITIS CHRONIC [None]
  - BACK PAIN [None]
  - ABDOMINAL PAIN UPPER [None]
  - PAIN [None]
  - VOMITING [None]
  - CHOLELITHIASIS [None]
  - NAUSEA [None]
